FAERS Safety Report 17746982 (Version 2)
Quarter: 2020Q2

REPORT INFORMATION
  Report Type: Spontaneous
  Country: PK (occurrence: PK)
  Receive Date: 20200505
  Receipt Date: 20200508
  Transmission Date: 20200714
  Serious: Yes (Life-Threatening, Hospitalization, Other)
  Sender: FDA-Public Use
  Company Number: PK-JNJFOC-20200435200

PATIENT
  Age: 30 Year
  Sex: Male
  Weight: 70 kg

DRUGS (1)
  1. LOPERAMIDE HYDROCHLORIDE. [Suspect]
     Active Substance: LOPERAMIDE HYDROCHLORIDE
     Indication: DIARRHOEA
     Dosage: TAKING LOPERAMIDE FOR LAST 3-4 MONTHS
     Route: 048

REACTIONS (10)
  - Electrocardiogram QT prolonged [Recovered/Resolved]
  - Pulseless electrical activity [Recovered/Resolved]
  - Generalised tonic-clonic seizure [Recovered/Resolved]
  - Toxicity to various agents [Recovered/Resolved]
  - Self-medication [Recovered/Resolved]
  - Arrhythmia [Recovered/Resolved]
  - Somnolence [Recovered/Resolved]
  - Ventricular tachycardia [Recovered/Resolved]
  - Haemodynamic instability [Recovered/Resolved]
  - Torsade de pointes [Recovered/Resolved]
